FAERS Safety Report 6280513-0 (Version None)
Quarter: 2009Q3

REPORT INFORMATION
  Report Type: 
  Country: None (occurrence: None)
  Receive Date: 20090724
  Receipt Date: 20080819
  Transmission Date: 20100115
  Serious: No
  Sender: FDA-Public Use
  Company Number: A0744008A

PATIENT
  Sex: Male

DRUGS (3)
  1. AVANDIA [Suspect]
     Indication: DIABETES MELLITUS
     Dosage: 4MG TWICE PER DAY
     Route: 048
     Dates: start: 20000101, end: 20020101
  2. ACTOS [Concomitant]
     Dates: start: 19990101
  3. GLUCOPHAGE [Concomitant]
     Dates: start: 19990101

REACTIONS (1)
  - INJURY [None]
